FAERS Safety Report 11586553 (Version 1)
Quarter: 2015Q3

REPORT INFORMATION
  Report Type: Spontaneous
  Country: US (occurrence: US)
  Receive Date: 20150916
  Receipt Date: 20150916
  Transmission Date: 20151125
  Serious: No
  Sender: FDA-Public Use
  Company Number: US-ELI_LILLY_AND_COMPANY-US200803000292

PATIENT
  Age: 69 Year
  Sex: Male

DRUGS (3)
  1. FORTEO [Suspect]
     Active Substance: TERIPARATIDE
     Indication: OSTEOPOROSIS
     Dates: start: 20080205
  2. VITAMIN D [Concomitant]
     Active Substance: CHOLECALCIFEROL
     Dates: end: 20080223
  3. METHOTREXATE [Concomitant]
     Active Substance: METHOTREXATE

REACTIONS (4)
  - Nausea [Not Recovered/Not Resolved]
  - Dysgeusia [Unknown]
  - Pain [Not Recovered/Not Resolved]
  - Calcium metabolism disorder [Not Recovered/Not Resolved]

NARRATIVE: CASE EVENT DATE: 20080205
